FAERS Safety Report 25664919 (Version 5)
Quarter: 2025Q4

REPORT INFORMATION
  Report Type: Spontaneous
  Country: US (occurrence: US)
  Receive Date: 20250811
  Receipt Date: 20251217
  Transmission Date: 20260117
  Serious: Yes (Hospitalization, Other)
  Sender: PFIZER
  Company Number: US-PFIZER INC-202500159665

PATIENT
  Age: 13 Year
  Sex: Female
  Weight: 52.7 kg

DRUGS (21)
  1. RUXIENCE [Suspect]
     Active Substance: RITUXIMAB-PVVR
     Indication: Nephrotic syndrome
     Dosage: 375 MG/M2
     Dates: start: 20250418
  2. RUXIENCE [Suspect]
     Active Substance: RITUXIMAB-PVVR
     Dosage: 566.3 MG, OTHER: ONCE
     Route: 042
     Dates: start: 20250418, end: 20250419
  3. RUXIENCE [Suspect]
     Active Substance: RITUXIMAB-PVVR
     Dosage: 745 MG
     Dates: start: 20251022, end: 20251022
  4. RUXIENCE [Suspect]
     Active Substance: RITUXIMAB-PVVR
     Dosage: 745 MG
     Dates: start: 20251022, end: 20251022
  5. RUXIENCE [Suspect]
     Active Substance: RITUXIMAB-PVVR
     Dosage: 745 MG
     Route: 042
     Dates: start: 20251022, end: 20251022
  6. CANDESARTAN [Concomitant]
     Active Substance: CANDESARTAN
     Indication: Blood pressure abnormal
     Dosage: 32 MG, DAILY
  7. CANDESARTAN [Concomitant]
     Active Substance: CANDESARTAN
     Indication: Nephrotic syndrome
  8. CANDESARTAN [Concomitant]
     Active Substance: CANDESARTAN
     Indication: Focal segmental glomerulosclerosis
  9. TACROLIMUS [Concomitant]
     Active Substance: TACROLIMUS
     Dosage: UNK
  10. ISRADIPINE [Concomitant]
     Active Substance: ISRADIPINE
     Indication: Blood pressure abnormal
     Dosage: Q4H (EVERY 4 HOURS) PRN (AS NEEDED) SBP}130 OR DBP}85
  11. ISRADIPINE [Concomitant]
     Active Substance: ISRADIPINE
     Indication: Nephrotic syndrome
  12. ISRADIPINE [Concomitant]
     Active Substance: ISRADIPINE
     Indication: Secondary hypertension
  13. ACETAMINOPHEN [Concomitant]
     Active Substance: ACETAMINOPHEN
     Indication: Premedication
     Dosage: UNK
  14. HYDROCORTISONE [Concomitant]
     Active Substance: HYDROCORTISONE
     Indication: Premedication
     Dosage: UNK
  15. DIPHENHYDRAMINE [Concomitant]
     Active Substance: DIPHENHYDRAMINE
     Indication: Premedication
     Dosage: UNK
  16. ONDANSETRON [Concomitant]
     Active Substance: ONDANSETRON
     Indication: Premedication
     Dosage: UNK
  17. FUROSEMIDE [Concomitant]
     Active Substance: FUROSEMIDE
     Indication: Nephrotic syndrome
     Dosage: 2 TIMES DAILY PRN FOR INCREASING EDEMA EVERY 4 HOURS PRN
  18. FUROSEMIDE [Concomitant]
     Active Substance: FUROSEMIDE
     Indication: Focal segmental glomerulosclerosis
  19. TYLENOL [Concomitant]
     Active Substance: ACETAMINOPHEN
     Indication: Premedication
     Dosage: UNK
  20. BENADRYL [Concomitant]
     Active Substance: DIPHENHYDRAMINE HYDROCHLORIDE
     Indication: Premedication
     Dosage: UNK
  21. ZOFRAN [Concomitant]
     Active Substance: ONDANSETRON HYDROCHLORIDE
     Indication: Premedication
     Dosage: UNK

REACTIONS (12)
  - Vomiting projectile [Recovered/Resolved]
  - Abdominal pain [Recovered/Resolved]
  - Malaise [Recovered/Resolved]
  - Erythema [Recovered/Resolved]
  - Face oedema [Recovered/Resolved]
  - Urticaria [Recovered/Resolved]
  - Anxiety [Recovered/Resolved]
  - Hyperhidrosis [Recovered/Resolved]
  - Hypotension [Recovered/Resolved]
  - Paraesthesia [Recovered/Resolved]
  - Dyspnoea [Recovered/Resolved]
  - Off label use [Recovered/Resolved]

NARRATIVE: CASE EVENT DATE: 20250418
